FAERS Safety Report 5024914-7 (Version None)
Quarter: 2006Q2

REPORT INFORMATION
  Report Type: 
  Country: None (occurrence: None)
  Receive Date: 20060607
  Receipt Date: 20060524
  Transmission Date: 20061013
  Serious: No
  Sender: FDA-Public Use
  Company Number: R301413-313-USA

PATIENT
  Age: 25 Year
  Sex: Female
  Weight: 63.5 kg

DRUGS (4)
  1. RABEPRAZOLE SODIUM [Suspect]
     Indication: DYSPEPSIA
     Dosage: 10 MG, 1 IN 1 D, ORAL
     Route: 048
     Dates: start: 20051201, end: 20051223
  2. GELUSIL (SIMECO) [Suspect]
     Dosage: 3-5 TABLETS, 3-5 TABLETS A DAY, ORAL
     Route: 048
     Dates: start: 20051201, end: 20051223
  3. DEPAKOTE [Concomitant]
  4. MIDRIN (MIDRID) [Concomitant]

REACTIONS (3)
  - ABORTION SPONTANEOUS [None]
  - DRUG EXPOSURE DURING PREGNANCY [None]
  - PREGNANCY [None]
